FAERS Safety Report 19456842 (Version 3)
Quarter: 2022Q1

REPORT INFORMATION
  Report Type: Report from Study
  Country: JP (occurrence: JP)
  Receive Date: 20210624
  Receipt Date: 20220104
  Transmission Date: 20220424
  Serious: Yes (Other)
  Sender: FDA-Public Use
  Company Number: JP-RECORDATI RARE DISEASE INC.-2021002335

PATIENT
  Age: 3 Day
  Sex: Male
  Weight: 1.073 kg

DRUGS (16)
  1. NEOPROFEN [Suspect]
     Active Substance: IBUPROFEN LYSINE
     Indication: Patent ductus arteriosus
     Dosage: 11 MILLIGRAM, QD
     Route: 042
     Dates: start: 20191220, end: 20191220
  2. NEOPROFEN [Suspect]
     Active Substance: IBUPROFEN LYSINE
     Dosage: 5 MILLIGRAM, QD
     Route: 042
     Dates: start: 20191221, end: 20191221
  3. GLUCOSE INJECTION MP [Concomitant]
     Indication: Parenteral nutrition
     Dosage: UNK UNK, UNK
     Route: 042
     Dates: start: 20191220, end: 20200103
  4. PLEAMIN P [Concomitant]
     Indication: Parenteral nutrition
     Dosage: UNK UNK, UNK
     Route: 042
     Dates: start: 20191220, end: 20200103
  5. SODIUM CHLORIDE [Concomitant]
     Active Substance: SODIUM CHLORIDE
     Indication: Parenteral nutrition
     Dosage: UNK UNK, UNK
     Route: 042
     Dates: start: 20191220, end: 20200104
  6. SODIUM CHLORIDE [Concomitant]
     Active Substance: SODIUM CHLORIDE
     Indication: Infusion
  7. VITAJECT [VITAMINS NOS] [Concomitant]
     Indication: Parenteral nutrition
     Dosage: UNK UNK, UNK
     Route: 042
     Dates: start: 20191220, end: 20200103
  8. ELEJECT [Concomitant]
     Indication: Parenteral nutrition
     Dosage: UNK UNK, UNK
     Route: 042
     Dates: start: 20191220, end: 20200103
  9. HEPARIN SODIUM [Concomitant]
     Active Substance: HEPARIN SODIUM
     Indication: Thrombosis prophylaxis
     Dosage: UNK UNK, UNK
     Route: 042
     Dates: start: 20191219, end: 20200104
  10. CALCIUM GLUCONATE [Concomitant]
     Active Substance: CALCIUM GLUCONATE
     Indication: Hypocalcaemia
     Dosage: UNK UNK, UNK
     Route: 042
     Dates: start: 20191219, end: 20200103
  11. DOPAMINE HYDROCHLORIDE [Concomitant]
     Active Substance: DOPAMINE HYDROCHLORIDE
     Indication: Hypotension
     Dosage: UNK UNK, UNK
     Route: 042
     Dates: start: 20191219, end: 20191221
  12. GLUCOSE INJECTION MP [Concomitant]
     Indication: Medication dilution
     Dosage: UNK UNK, UNK
     Route: 042
     Dates: start: 20191219, end: 20200104
  13. GLUCOSE INJECTION MP [Concomitant]
     Indication: Parenteral nutrition
  14. HUMULIN R [Concomitant]
     Active Substance: INSULIN HUMAN
     Indication: Hyperkalaemia
     Dosage: UNK UNK, UNK
     Route: 042
     Dates: start: 20191220, end: 20191220
  15. GLUCOSE INJECTION MP [Concomitant]
     Indication: Medication dilution
     Dosage: UNK UNK, UNK
     Route: 042
     Dates: start: 20191220, end: 20191220
  16. DOBUTAMINE [Concomitant]
     Active Substance: DOBUTAMINE HYDROCHLORIDE
     Indication: Hypotension
     Dosage: UNK UNK, UNK
     Route: 042
     Dates: start: 20191219, end: 20191226

REACTIONS (1)
  - Metabolic acidosis [Recovered/Resolved]

NARRATIVE: CASE EVENT DATE: 20191222
